FAERS Safety Report 20531684 (Version 1)
Quarter: 2022Q1

REPORT INFORMATION
  Report Type: Spontaneous
  Country: US (occurrence: None)
  Receive Date: 20220228
  Receipt Date: 20220228
  Transmission Date: 20220423
  Serious: Yes (Hospitalization)
  Sender: FDA-Public Use
  Company Number: None

PATIENT
  Age: 78 Year
  Sex: Female

DRUGS (7)
  1. OPSUMIT [Suspect]
     Active Substance: MACITENTAN
     Indication: Pulmonary hypertension
     Dosage: FREQUENCY : DAILY;?
     Route: 048
     Dates: start: 20180927, end: 20220214
  2. ATORVASTATIN [Concomitant]
     Active Substance: ATORVASTATIN
  3. WARFARIN [Concomitant]
     Active Substance: WARFARIN
  4. SINEMET [Concomitant]
     Active Substance: CARBIDOPA\LEVODOPA
  5. METOPROLOL [Concomitant]
     Active Substance: METOPROLOL
  6. MELATONIN [Concomitant]
     Active Substance: MELATONIN
  7. LASIX [Concomitant]
     Active Substance: FUROSEMIDE

REACTIONS (3)
  - Hip fracture [None]
  - Fall [None]
  - Therapy interrupted [None]

NARRATIVE: CASE EVENT DATE: 20220214
